FAERS Safety Report 10180791 (Version 2)
Quarter: 2014Q2

REPORT INFORMATION
  Report Type: Spontaneous
  Country: US (occurrence: US)
  Receive Date: 20140519
  Receipt Date: 20140519
  Transmission Date: 20141212
  Serious: No
  Sender: FDA-Public Use
  Company Number: US-AMGEN INC.-USASP2014009262

PATIENT
  Age: 53 Year
  Sex: Female
  Weight: 68.93 kg

DRUGS (4)
  1. PROLIA [Suspect]
     Indication: OSTEOPOROSIS POSTMENOPAUSAL
     Dosage: UNK UNK, Q6MO
     Route: 058
     Dates: start: 201308
  2. SPIRONOLACTONE [Concomitant]
     Dosage: 25 MG, BID
     Route: 048
     Dates: start: 20081024
  3. CRESTOR [Concomitant]
     Dosage: 10 MG, QHS
     Route: 048
     Dates: start: 20110823
  4. AMOXICILLIN [Concomitant]
     Indication: SINUSITIS
     Dosage: 875 MG, BID
     Route: 048

REACTIONS (1)
  - Urinary tract infection [Recovered/Resolved]
